FAERS Safety Report 11432646 (Version 3)
Quarter: 2015Q4

REPORT INFORMATION
  Report Type: Spontaneous
  Country: US (occurrence: US)
  Receive Date: 20150828
  Receipt Date: 20151027
  Transmission Date: 20160304
  Serious: No
  Sender: FDA-Public Use
  Company Number: PHEH2015US016277

PATIENT
  Sex: Male

DRUGS (1)
  1. EXELON PATCH [Suspect]
     Active Substance: RIVASTIGMINE
     Indication: PRODUCT USED FOR UNKNOWN INDICATION
     Dosage: 18 MG DAILY RIVASTIGMINE BASE (PATCH 10 (CM2) 9.5 MG/24HOURS) (FOR ABOUT 8 YEARS)
     Route: 062

REACTIONS (9)
  - Pain [Unknown]
  - Sciatica [Unknown]
  - Product adhesion issue [Unknown]
  - General physical health deterioration [Unknown]
  - Intervertebral disc disorder [Unknown]
  - Weight decreased [Not Recovered/Not Resolved]
  - Decreased appetite [Recovering/Resolving]
  - Back disorder [Unknown]
  - Application site erythema [Unknown]
